FAERS Safety Report 10046608 (Version 1)
Quarter: 2014Q1

REPORT INFORMATION
  Report Type: Spontaneous
  Country: US (occurrence: None)
  Receive Date: 20140328
  Receipt Date: 20140328
  Transmission Date: 20141002
  Serious: Yes (Other)
  Sender: FDA-Public Use
  Company Number: None

PATIENT
  Age: 50 Year
  Sex: Male
  Weight: 109.77 kg

DRUGS (1)
  1. TESTOSTERONE CYPIONATE [Suspect]
     Indication: HYPOGONADISM
     Route: 030
     Dates: start: 20140115, end: 20140312

REACTIONS (7)
  - Depression [None]
  - Metabolic syndrome [None]
  - Hypertensive crisis [None]
  - Polycythaemia [None]
  - Fatigue [None]
  - Haemoglobin increased [None]
  - Blood testosterone increased [None]
